FAERS Safety Report 10019588 (Version 2)
Quarter: 2014Q2

REPORT INFORMATION
  Report Type: Report from Study
  Country: JP (occurrence: JP)
  Receive Date: 20140318
  Receipt Date: 20140625
  Transmission Date: 20141212
  Serious: Yes (Other)
  Sender: FDA-Public Use
  Company Number: JP-BAYER-2014-038926

PATIENT
  Age: 80 Year
  Sex: Male
  Weight: 72 kg

DRUGS (2)
  1. STIVARGA [Suspect]
     Indication: RECTAL CANCER
     Dosage: 80 MG, QD; 3 WEEKS AND OFF FOR 1 WEEK
     Route: 048
     Dates: start: 20140107, end: 20140225
  2. HIRUDOID [Concomitant]
     Indication: DRUG TOXICITY PROPHYLAXIS
     Dosage: UNK
     Route: 061
     Dates: start: 20140107, end: 20140225

REACTIONS (2)
  - Interstitial lung disease [Not Recovered/Not Resolved]
  - Proteinuria [Recovering/Resolving]
